FAERS Safety Report 6337019-X (Version None)
Quarter: 2009Q3

REPORT INFORMATION
  Report Type: 
  Country: None (occurrence: None)
  Receive Date: 20090831
  Receipt Date: 20090825
  Transmission Date: 20100115
  Serious: Yes (Other)
  Sender: FDA-Public Use
  Company Number: ADE#  09-369DPR

PATIENT
  Age: 90 Year
  Sex: Female

DRUGS (1)
  1. DIGOXIN [Suspect]
     Dosage: ONE TABLET DAILY FOR YEARS

REACTIONS (2)
  - ATRIOVENTRICULAR BLOCK [None]
  - THERAPEUTIC AGENT TOXICITY [None]
